FAERS Safety Report 6113763-4 (Version None)
Quarter: 2009Q1

REPORT INFORMATION
  Report Type: 
  Country: None (occurrence: None)
  Receive Date: 20090312
  Receipt Date: 20090226
  Transmission Date: 20090719
  Serious: Yes (Hospitalization, Other)
  Sender: FDA-Public Use
  Company Number: SE-GENENTECH-277476

PATIENT
  Sex: Male

DRUGS (2)
  1. MABTHERA [Suspect]
     Indication: RHEUMATOID ARTHRITIS
     Dosage: 1000 MG, X2
     Route: 042
     Dates: start: 20070901
  2. MABTHERA [Suspect]
     Dosage: 100 UNK, X2
     Dates: start: 20080901, end: 20080915

REACTIONS (1)
  - ANGINA PECTORIS [None]
